FAERS Safety Report 8231097-9 (Version None)
Quarter: 2012Q1

REPORT INFORMATION
  Report Type: 
  Country: None (occurrence: None)
  Receive Date: 20120322
  Receipt Date: 20120322
  Transmission Date: 20120608
  Serious: Yes (Life-Threatening, Hospitalization, Disabling, Other)
  Sender: FDA-Public Use
  Company Number: None

PATIENT
  Age: 65 Year
  Sex: Male
  Weight: 69.853 kg

DRUGS (2)
  1. JALYN [Suspect]
     Indication: BENIGN PROSTATIC HYPERPLASIA
     Dates: start: 20111115, end: 20120214
  2. JALYN [Suspect]

REACTIONS (4)
  - FALL [None]
  - FACIAL BONES FRACTURE [None]
  - MULTIPLE FRACTURES [None]
  - SYNCOPE [None]
